FAERS Safety Report 8672041 (Version 4)
Quarter: 2014Q1

REPORT INFORMATION
  Report Type: Spontaneous
  Country: BR (occurrence: BR)
  Receive Date: 20120719
  Receipt Date: 20140113
  Transmission Date: 20141002
  Serious: Yes (Life-Threatening, Hospitalization, Other)
  Sender: FDA-Public Use
  Company Number: BR-BIOGENIDEC-2012BI025020

PATIENT
  Age: 26 Year
  Sex: Female
  Weight: 70 kg

DRUGS (18)
  1. TYSABRI [Suspect]
     Indication: MULTIPLE SCLEROSIS
     Route: 042
     Dates: start: 20090701, end: 20120620
  2. TYSABRI [Suspect]
     Indication: MULTIPLE SCLEROSIS
     Route: 042
     Dates: start: 20120920
  3. LACTULONA [Concomitant]
     Indication: CONSTIPATION
     Route: 048
     Dates: start: 2003
  4. LUFTAL [Concomitant]
     Indication: CONSTIPATION
     Route: 048
     Dates: start: 2005
  5. NOVOFER [Concomitant]
     Indication: ANAEMIA
  6. OMEPRAZOLE [Concomitant]
     Indication: PROPHYLAXIS
  7. VENLAFAXINE HYDROCHLORIDE [Concomitant]
  8. FOLIC ACID [Concomitant]
     Indication: ANAEMIA
  9. VITAMIN C [Concomitant]
     Indication: ANAEMIA
  10. ZINC [Concomitant]
     Indication: ANAEMIA
  11. DEPURA [Concomitant]
  12. TECTA [Concomitant]
  13. CHOLECALCIFEROL [Concomitant]
  14. PROPRANOLOL [Concomitant]
  15. CITONEURIN [Concomitant]
  16. DIANI [Concomitant]
     Indication: MENSTRUAL CYCLE MANAGEMENT
  17. NARAMIG [Concomitant]
     Indication: HEADACHE
  18. CYMBALTA [Concomitant]
     Indication: DEPRESSION

REACTIONS (6)
  - Urinary tract infection [Recovered/Resolved]
  - Infection [Recovered/Resolved]
  - Coma [Recovered/Resolved]
  - Pain [Not Recovered/Not Resolved]
  - Renal pain [Not Recovered/Not Resolved]
  - Abdominal pain upper [Not Recovered/Not Resolved]
